FAERS Safety Report 7506402-9 (Version None)
Quarter: 2011Q2

REPORT INFORMATION
  Report Type: 
  Country: None (occurrence: None)
  Receive Date: 20110526
  Receipt Date: 20110518
  Transmission Date: 20111010
  Serious: Yes (Other)
  Sender: FDA-Public Use
  Company Number: US-ABBOTT-11P-163-0727275-00

PATIENT
  Sex: Female
  Weight: 59.02 kg

DRUGS (3)
  1. HUMIRA [Suspect]
     Indication: RHEUMATOID ARTHRITIS
     Dates: start: 20080101
  2. HYDROCODONE BITARTRATE [Concomitant]
     Indication: PAIN
  3. LISINOPRIL [Concomitant]
     Indication: PRODUCT USED FOR UNKNOWN INDICATION

REACTIONS (5)
  - DRY MOUTH [None]
  - SJOGREN'S SYNDROME [None]
  - DRY SKIN [None]
  - HAIR TEXTURE ABNORMAL [None]
  - VISUAL IMPAIRMENT [None]
